FAERS Safety Report 5447861-5 (Version None)
Quarter: 2007Q3

REPORT INFORMATION
  Report Type: 
  Country: None (occurrence: None)
  Receive Date: 20070910
  Receipt Date: 20070905
  Transmission Date: 20080115
  Serious: Yes (Hospitalization)
  Sender: FDA-Public Use
  Company Number: AU-PFIZER INC-2007063067

PATIENT
  Age: 64 Year
  Sex: Female
  Weight: 105 kg

DRUGS (9)
  1. CELEBREX [Suspect]
     Indication: OSTEOARTHRITIS
     Dosage: DAILY DOSE:200MG
     Route: 048
  2. PANADOL [Suspect]
     Indication: OSTEOARTHRITIS
     Route: 048
  3. ACETAMINOPHEN W/ CODEINE [Concomitant]
  4. SUMATRIPTAN SUCCINATE [Concomitant]
  5. AROPAX [Concomitant]
  6. DIAZEPAM [Concomitant]
  7. LASIX [Concomitant]
  8. SLOW-K [Concomitant]
  9. LIPITOR [Concomitant]

REACTIONS (2)
  - ANAEMIA MACROCYTIC [None]
  - PEPTIC ULCER HAEMORRHAGE [None]
